FAERS Safety Report 5521738-9 (Version None)
Quarter: 2007Q4

REPORT INFORMATION
  Report Type: 
  Country: None (occurrence: None)
  Receive Date: 20071120
  Receipt Date: 20071112
  Transmission Date: 20080405
  Serious: Yes (Life-Threatening, Hospitalization, Other)
  Sender: FDA-Public Use
  Company Number: GB-AVENTIS-200720539GDDC

PATIENT
  Age: 60 Year
  Sex: Female

DRUGS (6)
  1. METRONIDAZOLE [Suspect]
     Route: 042
     Dates: start: 20071026, end: 20071030
  2. AMOXICILLIN + CLAVULANATE POTASSIUM [Suspect]
     Route: 042
     Dates: start: 20071025, end: 20071030
  3. CLARITHROMYCIN [Suspect]
     Route: 042
     Dates: start: 20071026, end: 20071030
  4. LOSEC                              /00661201/ [Suspect]
  5. ATORVASTATIN CALCIUM [Concomitant]
  6. EPILIM [Concomitant]

REACTIONS (1)
  - LIVER FUNCTION TEST ABNORMAL [None]
